FAERS Safety Report 6185847-6 (Version None)
Quarter: 2009Q2

REPORT INFORMATION
  Report Type: 
  Country: None (occurrence: None)
  Receive Date: 20090511
  Receipt Date: 20090501
  Transmission Date: 20091009
  Serious: Yes (Hospitalization)
  Sender: FDA-Public Use
  Company Number: A0777910A

PATIENT
  Age: 67 Year
  Sex: Male
  Weight: 95 kg

DRUGS (4)
  1. AVANDIA [Suspect]
     Dosage: 8MG PER DAY
     Route: 048
     Dates: start: 20051101, end: 20070201
  2. METFORMIN HCL [Concomitant]
     Dosage: 500MG TWICE PER DAY
     Dates: start: 20070201
  3. AMARYL [Concomitant]
     Dosage: 2MG PER DAY
     Dates: start: 20070201
  4. DIABETA [Concomitant]
     Dosage: 5MG PER DAY
     Dates: start: 20070201

REACTIONS (1)
  - SILENT MYOCARDIAL INFARCTION [None]
